FAERS Safety Report 15074524 (Version 1)
Quarter: 2018Q2

REPORT INFORMATION
  Report Type: Spontaneous
  Country: US (occurrence: US)
  Receive Date: 20180627
  Receipt Date: 20180627
  Transmission Date: 20180711
  Serious: Yes (Other)
  Sender: FDA-Public Use
  Company Number: US-SAOL THERAPEUTICS-2018SAO00572

PATIENT
  Sex: Female

DRUGS (6)
  1. DILAUDID [Concomitant]
     Active Substance: HYDROMORPHONE HYDROCHLORIDE
     Route: 048
  2. DILAUDID [Suspect]
     Active Substance: HYDROMORPHONE HYDROCHLORIDE
     Dosage: 1.708 MG, \DAY
     Route: 037
  3. BUPIVACAINE. [Suspect]
     Active Substance: BUPIVACAINE
     Dosage: 0.8542 ?G, \DAY
     Route: 037
  4. BACLOFEN. [Suspect]
     Active Substance: BACLOFEN
     Dosage: 8.542 ?G, \DAY
     Route: 037
  5. FENTANYL. [Suspect]
     Active Substance: FENTANYL
     Dosage: 8.542 ?G, \DAY
     Route: 037
  6. MORPHINE [Suspect]
     Active Substance: MORPHINE
     Route: 037

REACTIONS (9)
  - Sciatica [Unknown]
  - Implant site extravasation [Recovered/Resolved]
  - Implant site pain [Recovered/Resolved]
  - Headache [Recovered/Resolved]
  - Device dislocation [Not Recovered/Not Resolved]
  - Paranoia [Recovered/Resolved]
  - Off label use [Not Recovered/Not Resolved]
  - Implant site bruising [Unknown]
  - Abdominal pain [Unknown]

NARRATIVE: CASE EVENT DATE: 1999
